FAERS Safety Report 13004989 (Version 2)
Quarter: 2017Q1

REPORT INFORMATION
  Report Type: Spontaneous
  Country: US (occurrence: US)
  Receive Date: 20161207
  Receipt Date: 20170302
  Transmission Date: 20170428
  Serious: No
  Sender: FDA-Public Use
  Company Number: US-PFIZER INC-2016559751

PATIENT
  Age: 50 Year
  Sex: Female
  Weight: 87.53 kg

DRUGS (14)
  1. LYRICA [Suspect]
     Active Substance: PREGABALIN
     Indication: PAIN
     Dosage: 100 MG, 2X/DAY (COUPLE OF DAYS I TOOK TWO LIKE ONE IN THE MORNING AND ONE AT NIGHT)
  2. TOPAMAX [Concomitant]
     Active Substance: TOPIRAMATE
     Dosage: 50 MG, 2X/DAY
     Route: 048
  3. CARISOPRODOL. [Concomitant]
     Active Substance: CARISOPRODOL
     Indication: MUSCLE SPASMS
     Dosage: 350 MG, AS NEEDED (ONE THREE TIMES A DAY)
  4. TESSALON [Concomitant]
     Active Substance: BENZONATATE
     Indication: SINUSITIS
     Dosage: UNK
  5. LYRICA [Suspect]
     Active Substance: PREGABALIN
     Indication: NEUROPATHY PERIPHERAL
     Dosage: 100 MG, 3X/DAY
     Route: 048
  6. LYRICA [Suspect]
     Active Substance: PREGABALIN
     Indication: PAIN IN EXTREMITY
     Dosage: 100 MG, UNK (YESTERDAY I TOOK ONE)
  7. LYRICA [Suspect]
     Active Substance: PREGABALIN
     Indication: PARAESTHESIA
  8. OXYCONTIN [Concomitant]
     Active Substance: OXYCODONE HYDROCHLORIDE
     Indication: BACK PAIN
     Dosage: 40 MG, 2X/DAY
  9. OXYCONTIN [Concomitant]
     Active Substance: OXYCODONE HYDROCHLORIDE
     Indication: NECK PAIN
     Dosage: 10 MG, 3X/DAY
  10. BUTALBITAL-ACETAMINOPHEN-CAFFEINE [Concomitant]
     Indication: MIGRAINE
     Dosage: UNK UNK, AS NEEDED [BUTALBITAL: 50 MG]/[CAFFEINE: 40 MG]/[PARACETAMOL: 325 MG] (EVERY 6 HOURS)
  11. LAMICTAL [Concomitant]
     Active Substance: LAMOTRIGINE
     Dosage: 200 MG, 2X/DAY
  12. MIRALAX [Concomitant]
     Active Substance: POLYETHYLENE GLYCOL 3350
     Indication: CONSTIPATION
     Dosage: 17 G, UNK
  13. LYRICA [Suspect]
     Active Substance: PREGABALIN
     Indication: HYPOAESTHESIA
  14. PHENERGAN [Concomitant]
     Active Substance: PROMETHAZINE HYDROCHLORIDE
     Indication: NAUSEA
     Dosage: 25 MG, AS NEEDED
     Route: 048
     Dates: start: 1993, end: 1994

REACTIONS (3)
  - Insomnia [Not Recovered/Not Resolved]
  - Mood altered [Unknown]
  - Intentional product misuse [Unknown]
